FAERS Safety Report 4908405-7 (Version None)
Quarter: 2006Q1

REPORT INFORMATION
  Report Type: 
  Country: None (occurrence: None)
  Receive Date: 20060210
  Receipt Date: 20040428
  Transmission Date: 20060701
  Serious: No
  Sender: FDA-Public Use
  Company Number: US-GLAXOSMITHKLINE-A0508760A

PATIENT
  Age: 61 Year
  Sex: Female

DRUGS (11)
  1. PAXIL CR [Suspect]
     Indication: DEPRESSION
     Dosage: 12.5MG PER DAY
     Route: 048
     Dates: start: 20040403
  2. PAXIL [Suspect]
     Dosage: 15MG PER DAY
     Route: 048
     Dates: start: 20040101
  3. XANAX [Concomitant]
  4. FLEXERIL [Concomitant]
  5. DARVOCET-N 100 [Concomitant]
  6. HYDROCODONE BITARTRATE [Concomitant]
  7. THYROID TAB [Concomitant]
  8. BIAXIN XL [Concomitant]
  9. METHADONE [Concomitant]
  10. ESTROGEN [Concomitant]
     Route: 062
  11. ZELNORM [Concomitant]

REACTIONS (4)
  - FEELING JITTERY [None]
  - HEADACHE [None]
  - MIGRAINE [None]
  - MUSCLE SPASMS [None]
